FAERS Safety Report 7645131-8 (Version None)
Quarter: 2011Q3

REPORT INFORMATION
  Report Type: 
  Country: None (occurrence: None)
  Receive Date: 20110725
  Receipt Date: 20110711
  Transmission Date: 20111222
  Serious: Yes (Other)
  Sender: FDA-Public Use
  Company Number: 11-000776

PATIENT
  Sex: Female

DRUGS (1)
  1. LO LOESTRIN FE [Suspect]
     Dosage: 10/1000 UG, QD, ORAL
     Route: 048
     Dates: start: 20110705, end: 20110701

REACTIONS (6)
  - PARALYSIS [None]
  - MUSCULAR WEAKNESS [None]
  - SWELLING FACE [None]
  - HYPOAESTHESIA [None]
  - MIGRAINE [None]
  - SWOLLEN TONGUE [None]
